FAERS Safety Report 8755849 (Version 6)
Quarter: 2016Q1

REPORT INFORMATION
  Report Type: Spontaneous
  Country: GB (occurrence: GB)
  Receive Date: 20120827
  Receipt Date: 20160215
  Transmission Date: 20160526
  Serious: Yes (Other)
  Sender: FDA-Public Use
  Company Number: GB-BRISTOL-MYERS SQUIBB COMPANY-16861130

PATIENT
  Age: 15 Year
  Sex: Female

DRUGS (4)
  1. LAMOTRIGINE. [Interacting]
     Active Substance: LAMOTRIGINE
     Indication: BIPOLAR DISORDER
     Dosage: 50 MG, TID
     Route: 048
  2. ABILIFY [Suspect]
     Active Substance: ARIPIPRAZOLE
     Indication: BIPOLAR DISORDER
     Route: 065
  3. CETIRIZINE HCL [Interacting]
     Active Substance: CETIRIZINE HYDROCHLORIDE
     Indication: SEASONAL ALLERGY
     Dosage: OCCASIONAL CETIRIZINE
     Route: 048
  4. ETONOGESTREL [Interacting]
     Active Substance: ETONOGESTREL
     Indication: CONTRACEPTION
     Dosage: UNK
     Route: 065

REACTIONS (4)
  - Pregnancy with implant contraceptive [Recovered/Resolved]
  - Drug interaction [Unknown]
  - Abortion spontaneous [Unknown]
  - Metrorrhagia [Unknown]
